FAERS Safety Report 6217928-2 (Version None)
Quarter: 2009Q2

REPORT INFORMATION
  Report Type: 
  Country: None (occurrence: None)
  Receive Date: 20090604
  Receipt Date: 20090526
  Transmission Date: 20091009
  Serious: Yes (Hospitalization, Other)
  Sender: FDA-Public Use
  Company Number: 1000006324

PATIENT
  Age: 54 Year
  Sex: Male
  Weight: 90 kg

DRUGS (3)
  1. ESCITALOPRAM OXALATE [Suspect]
     Dosage: ONCE, ORAL
     Route: 048
     Dates: start: 20090511, end: 20090511
  2. ZOPICLON (7.5 MILLIGRAMS, TABLETS) [Suspect]
     Dosage: 75 MG (75 MG, ONCE) ORAL
     Route: 048
     Dates: start: 20090511, end: 20090511
  3. IMIPRAMINE [Suspect]
     Dosage: ORAL
     Route: 048
     Dates: start: 20090511, end: 20090511

REACTIONS (5)
  - GASTROINTESTINAL SOUNDS ABNORMAL [None]
  - INTENTIONAL OVERDOSE [None]
  - RHABDOMYOLYSIS [None]
  - SOPOR [None]
  - SUICIDE ATTEMPT [None]
